FAERS Safety Report 8951041 (Version 1)
Quarter: 2012Q4

REPORT INFORMATION
  Report Type: 
  Country: FR (occurrence: FR)
  Receive Date: 20121207
  Receipt Date: 20121207
  Transmission Date: 20130627
  Serious: Yes (Hospitalization)
  Sender: FDA-Public Use
  Company Number: FR-ELI_LILLY_AND_COMPANY-FR201212001400

PATIENT

DRUGS (2)
  1. GEMCITABINE HYDROCHLORIDE [Suspect]
     Indication: HEPATIC NEOPLASM MALIGNANT
     Dosage: 1000 mg/m2, other
  2. OXALIPLATIN [Concomitant]
     Indication: HEPATIC NEOPLASM MALIGNANT
     Dosage: 100 mg/m2, other

REACTIONS (1)
  - Ascites [Unknown]
